FAERS Safety Report 21612567 (Version 1)
Quarter: 2022Q4

REPORT INFORMATION
  Report Type: Spontaneous
  Country: US (occurrence: US)
  Receive Date: 20221118
  Receipt Date: 20221118
  Transmission Date: 20230113
  Serious: No
  Sender: FDA-Public Use
  Company Number: US-BION-010187

PATIENT
  Sex: Female

DRUGS (2)
  1. VITAMIN D [Suspect]
     Active Substance: VITAMIN D NOS
     Indication: Product used for unknown indication
  2. COVID-19 VACCINE NOS [Suspect]
     Active Substance: COVID-19 VACCINE NOS
     Indication: Product used for unknown indication

REACTIONS (9)
  - Crystalluria [Unknown]
  - Heart rate increased [Unknown]
  - Hyperhidrosis [Unknown]
  - Pyrexia [Unknown]
  - Somnolence [Unknown]
  - Chills [Unknown]
  - Nausea [Unknown]
  - Sinus arrhythmia [Unknown]
  - Feeling abnormal [Unknown]
